FAERS Safety Report 15936195 (Version 2)
Quarter: 2019Q2

REPORT INFORMATION
  Report Type: Report from Study
  Country: FR (occurrence: FR)
  Receive Date: 20190208
  Receipt Date: 20190419
  Transmission Date: 20190711
  Serious: Yes (Hospitalization)
  Sender: FDA-Public Use
  Company Number: FR-BIOGEN-2019BI00693977

PATIENT
  Age: 20 Year
  Sex: Female
  Weight: 54 kg

DRUGS (1)
  1. TYSABRI [Suspect]
     Active Substance: NATALIZUMAB
     Indication: RELAPSING-REMITTING MULTIPLE SCLEROSIS
     Route: 050
     Dates: start: 20180225

REACTIONS (8)
  - Blister [Not Recovered/Not Resolved]
  - Skin lesion [Not Recovered/Not Resolved]
  - Tachycardia [Not Recovered/Not Resolved]
  - Depressed mood [Not Recovered/Not Resolved]
  - Heart rate increased [Not Recovered/Not Resolved]
  - Behaviour disorder [Not Recovered/Not Resolved]
  - Anger [Not Recovered/Not Resolved]
  - Skin infection [Not Recovered/Not Resolved]

NARRATIVE: CASE EVENT DATE: 20180225
